FAERS Safety Report 13213086 (Version 1)
Quarter: 2017Q1

REPORT INFORMATION
  Report Type: Spontaneous
  Country: PL (occurrence: PL)
  Receive Date: 20170210
  Receipt Date: 20170210
  Transmission Date: 20170428
  Serious: Yes (Life-Threatening, Hospitalization)
  Sender: FDA-Public Use
  Company Number: PHBS2017PL000442

PATIENT
  Age: 73 Year
  Sex: Female
  Weight: 62 kg

DRUGS (6)
  1. TAFINLAR [Suspect]
     Active Substance: DABRAFENIB MESYLATE
     Indication: METASTATIC MALIGNANT MELANOMA
     Dosage: 300 MG, QD (150 MG X 2)
     Route: 048
     Dates: start: 201609, end: 20170109
  2. PABI-DEXAMETHASON [Concomitant]
     Indication: BRAF GENE MUTATION
  3. PABI-DEXAMETHASON [Concomitant]
     Indication: METASTATIC MALIGNANT MELANOMA
     Dosage: 6 MG TO 4 MG
     Route: 048
     Dates: start: 201608
  4. MEKINIST [Suspect]
     Active Substance: TRAMETINIB DIMETHYL SULFOXIDE
     Indication: METASTATIC MALIGNANT MELANOMA
     Dosage: 2 MG, UNK
     Route: 048
     Dates: start: 201610, end: 20170109
  5. MEKINIST [Suspect]
     Active Substance: TRAMETINIB DIMETHYL SULFOXIDE
     Indication: BRAF GENE MUTATION
  6. TAFINLAR [Suspect]
     Active Substance: DABRAFENIB MESYLATE
     Indication: BRAF GENE MUTATION

REACTIONS (7)
  - Dementia [Unknown]
  - Stupor [Unknown]
  - Speech disorder [Unknown]
  - Thirst decreased [Unknown]
  - Decreased appetite [Unknown]
  - Hyporeflexia [Unknown]
  - Muscular weakness [Unknown]

NARRATIVE: CASE EVENT DATE: 20170105
